FAERS Safety Report 7434593-7 (Version None)
Quarter: 2011Q2

REPORT INFORMATION
  Report Type: 
  Country: None (occurrence: None)
  Receive Date: 20110425
  Receipt Date: 20110421
  Transmission Date: 20111010
  Serious: Yes (Death)
  Sender: FDA-Public Use
  Company Number: CA-ABBOTT-10P-028-0684910-00

PATIENT
  Sex: Male
  Weight: 99.88 kg

DRUGS (3)
  1. MAVIK [Suspect]
     Indication: ESSENTIAL HYPERTENSION
     Dosage: INITIAL DOSE: 1MG PER DAY
     Dates: start: 20090629
  2. MAVIK [Suspect]
     Indication: MYOCARDIAL INFARCTION
  3. FUROSEMIDE [Concomitant]
     Indication: CARDIOVASCULAR DISORDER
     Dosage: 20 MG DAILY

REACTIONS (1)
  - RENAL FAILURE [None]
